FAERS Safety Report 14100928 (Version 1)
Quarter: 2017Q4

REPORT INFORMATION
  Report Type: Spontaneous
  Country: FR (occurrence: FR)
  Receive Date: 20171018
  Receipt Date: 20171018
  Transmission Date: 20180321
  Serious: Yes (Hospitalization)
  Sender: FDA-Public Use
  Company Number: FR-ROCHE-2006705

PATIENT
  Sex: Female

DRUGS (10)
  1. VALIUM [Suspect]
     Active Substance: DIAZEPAM
     Indication: WITHDRAWAL SYNDROME
     Route: 048
  2. AMISULPRIDE [Concomitant]
     Active Substance: AMISULPRIDE
  3. ALCOHOL. [Concomitant]
     Active Substance: ALCOHOL
     Dosage: 3 FLASH VODKAS PER DAY
     Route: 065
  4. NOCTAMIDE [Suspect]
     Active Substance: LORMETAZEPAM
     Indication: WITHDRAWAL SYNDROME
     Route: 048
  5. PARACETAMOL [Concomitant]
     Active Substance: ACETAMINOPHEN
  6. TERALITHE [Concomitant]
     Active Substance: LITHIUM CARBONATE
  7. TOPIRAMATE. [Concomitant]
     Active Substance: TOPIRAMATE
  8. EFFEXOR [Concomitant]
     Active Substance: VENLAFAXINE HYDROCHLORIDE
  9. COCAINE [Concomitant]
     Active Substance: COCAINE
     Route: 065
  10. LEVOTHYROX [Concomitant]
     Active Substance: LEVOTHYROXINE

REACTIONS (2)
  - Drug diversion [Not Recovered/Not Resolved]
  - Drug dependence [Not Recovered/Not Resolved]
